FAERS Safety Report 6097910-9 (Version None)
Quarter: 2009Q1

REPORT INFORMATION
  Report Type: 
  Country: None (occurrence: None)
  Receive Date: 20090227
  Receipt Date: 20090219
  Transmission Date: 20090719
  Serious: Yes (Hospitalization)
  Sender: FDA-Public Use
  Company Number: PHHY2009MX06182

PATIENT
  Age: 64 Year
  Sex: Female

DRUGS (5)
  1. RASILEZ [Suspect]
     Indication: HYPERTENSION
     Dosage: 150 MG/DAILY
     Route: 048
  2. EXFORGE [Concomitant]
     Dosage: 160/5 MG
     Route: 048
  3. OMEPRAZOLE [Concomitant]
  4. CINITAPRIDE [Concomitant]
     Dosage: UNK
  5. ISOSORBID [Concomitant]

REACTIONS (3)
  - DYSPNOEA [None]
  - HYPERTENSION [None]
  - PNEUMONIA [None]
